FAERS Safety Report 5336143-8 (Version None)
Quarter: 2007Q1

REPORT INFORMATION
  Report Type: 
  Country: None (occurrence: None)
  Receive Date: 20070302
  Receipt Date: 20061213
  Transmission Date: 20070707
  Serious: No
  Sender: FDA-Public Use
  Company Number: PHEH2006US15234

PATIENT
  Age: 59 Year
  Sex: Female

DRUGS (1)
  1. ENABLEX [Suspect]
     Indication: POLLAKIURIA
     Dosage: 7.5 MG, QD

REACTIONS (4)
  - DRY SKIN [None]
  - TRICHORRHEXIS [None]
  - URINE ODOUR ABNORMAL [None]
  - WEIGHT INCREASED [None]
